FAERS Safety Report 14116420 (Version 2)
Quarter: 2018Q1

REPORT INFORMATION
  Report Type: Report from Study
  Country: US (occurrence: US)
  Receive Date: 20171023
  Receipt Date: 20180202
  Transmission Date: 20180508
  Serious: Yes (Hospitalization, Other)
  Sender: FDA-Public Use
  Company Number: US-BAYER-2017-017593

PATIENT
  Age: 74 Year
  Sex: Female
  Weight: 112.2 kg

DRUGS (11)
  1. ADEMPAS [Suspect]
     Active Substance: RIOCIGUAT
     Indication: PULMONARY ARTERIAL HYPERTENSION
     Dosage: 1.5 MG, TID
     Route: 048
  2. DILTIAZEM. [Concomitant]
     Active Substance: DILTIAZEM
     Dosage: UNK
  3. OPSUMIT [Concomitant]
     Active Substance: MACITENTAN
     Dosage: UNK
  4. ADEMPAS [Suspect]
     Active Substance: RIOCIGUAT
     Indication: PULMONARY ARTERIAL HYPERTENSION
     Dosage: 1 MG, TID
     Route: 048
  5. ADEMPAS [Suspect]
     Active Substance: RIOCIGUAT
     Indication: PULMONARY ARTERIAL HYPERTENSION
     Dosage: 2.5 MG, TID
     Route: 048
  6. ADEMPAS [Suspect]
     Active Substance: RIOCIGUAT
     Indication: PULMONARY ARTERIAL HYPERTENSION
     Dosage: 2 MG, TID
     Route: 048
  7. ADEMPAS [Suspect]
     Active Substance: RIOCIGUAT
     Indication: PULMONARY ARTERIAL HYPERTENSION
     Dosage: 2.5 MG, TID
     Route: 048
     Dates: start: 20170905
  8. WARFARIN [Concomitant]
     Active Substance: WARFARIN
     Dosage: UNK
  9. AMLODIPINE [Concomitant]
     Active Substance: AMLODIPINE BESYLATE
     Dosage: UNK
  10. ADEMPAS [Suspect]
     Active Substance: RIOCIGUAT
     Indication: PULMONARY ARTERIAL HYPERTENSION
     Dosage: 2.5 MG, TID
     Route: 048
  11. ADEMPAS [Suspect]
     Active Substance: RIOCIGUAT
     Indication: PULMONARY ARTERIAL HYPERTENSION
     Dosage: 0.5 MG, TID
     Route: 048
     Dates: start: 20170117

REACTIONS (31)
  - Coma [Unknown]
  - Memory impairment [Unknown]
  - Lacrimation increased [Unknown]
  - Tremor [Unknown]
  - Headache [None]
  - Peripheral swelling [Not Recovered/Not Resolved]
  - Pyrexia [None]
  - Fluid retention [Unknown]
  - Influenza like illness [Unknown]
  - Oedema peripheral [Not Recovered/Not Resolved]
  - Gastrooesophageal reflux disease [Not Recovered/Not Resolved]
  - Fatigue [Not Recovered/Not Resolved]
  - Feeling cold [Unknown]
  - Fall [None]
  - Nasal congestion [Not Recovered/Not Resolved]
  - Infection [None]
  - Influenza [Unknown]
  - Nasal congestion [None]
  - Insomnia [Unknown]
  - Nasal obstruction [None]
  - Gait inability [None]
  - Pulmonary arterial hypertension [Unknown]
  - Hypotension [Unknown]
  - Abdominal discomfort [Unknown]
  - Erythema [None]
  - Fatigue [Unknown]
  - Eye haemorrhage [Unknown]
  - Metabolic surgery [None]
  - Swelling face [Unknown]
  - Urine analysis abnormal [Unknown]
  - Sinus congestion [Unknown]

NARRATIVE: CASE EVENT DATE: 2017
